FAERS Safety Report 16781292 (Version 2)
Quarter: 2020Q2

REPORT INFORMATION
  Report Type: Report from Study
  Country: US (occurrence: US)
  Receive Date: 20190906
  Receipt Date: 20200429
  Transmission Date: 20200713
  Serious: No
  Sender: FDA-Public Use
  Company Number: US-SA-2019SA243635

PATIENT
  Age: 72 Year
  Sex: Female
  Weight: 97.05 kg

DRUGS (2)
  1. DUPILUMAB [Suspect]
     Active Substance: DUPILUMAB
     Dosage: 300 MG, QOW
     Route: 058
     Dates: start: 2019
  2. DUPILUMAB [Suspect]
     Active Substance: DUPILUMAB
     Indication: ASTHMA
     Dosage: 600 MG, 1X
     Route: 058
     Dates: start: 20190605, end: 20190605

REACTIONS (10)
  - Pain [Unknown]
  - Visual impairment [Unknown]
  - Back disorder [Unknown]
  - Photophobia [Unknown]
  - Gait disturbance [Unknown]
  - Spinal pain [Unknown]
  - Product use issue [Unknown]
  - Fibromyalgia [Unknown]
  - Arthropathy [Unknown]
  - Arthralgia [Unknown]

NARRATIVE: CASE EVENT DATE: 20190605
